FAERS Safety Report 7095315-5 (Version None)
Quarter: 2010Q4

REPORT INFORMATION
  Report Type: 
  Country: None (occurrence: None)
  Receive Date: 20101111
  Receipt Date: 20101105
  Transmission Date: 20110411
  Serious: Yes (Death, Hospitalization)
  Sender: FDA-Public Use
  Company Number: JP-BAYER-200910273BYL

PATIENT
  Age: 52 Year
  Sex: Male
  Weight: 60 kg

DRUGS (4)
  1. NEXAVAR [Suspect]
     Indication: RENAL CELL CARCINOMA
     Dosage: TOTAL DAILY DOSE: 800 MG  UNIT DOSE: 200 MG
     Route: 048
     Dates: start: 20081013, end: 20081227
  2. NEXAVAR [Suspect]
     Route: 048
     Dates: end: 20090108
  3. MORPHINE [Suspect]
     Indication: PAIN
     Route: 042
     Dates: start: 20090113, end: 20090114
  4. SUMIFERON [Concomitant]
     Route: 058
     Dates: start: 20081006, end: 20081107

REACTIONS (7)
  - ANAEMIA [None]
  - ASTHENIA [None]
  - BLOOD PRESSURE DECREASED [None]
  - HAEMOPTYSIS [None]
  - HAEMOTHORAX [None]
  - HEPATIC ENZYME INCREASED [None]
  - RASH [None]
